FAERS Safety Report 7299763-X (Version None)
Quarter: 2011Q1

REPORT INFORMATION
  Report Type: 
  Country: None (occurrence: None)
  Receive Date: 20110217
  Receipt Date: 20110208
  Transmission Date: 20110831
  Serious: Yes (Hospitalization)
  Sender: FDA-Public Use
  Company Number: US-ASTRAZENECA-2011SE07524

PATIENT
  Age: 87 Year
  Sex: Female
  Weight: 42.2 kg

DRUGS (5)
  1. NEXIUM [Suspect]
     Indication: GASTROOESOPHAGEAL REFLUX DISEASE
     Route: 048
     Dates: start: 20090101
  2. XANAX [Concomitant]
  3. ATENOLOL [Concomitant]
  4. NORVASC [Concomitant]
  5. LEVOTHYROXINE SODIUM [Concomitant]

REACTIONS (7)
  - PALPITATIONS [None]
  - PNEUMONIA [None]
  - HEART RATE IRREGULAR [None]
  - OROPHARYNGEAL PAIN [None]
  - ABDOMINAL DISCOMFORT [None]
  - DRUG INEFFECTIVE [None]
  - APHAGIA [None]
